FAERS Safety Report 6669413-1 (Version None)
Quarter: 2010Q2

REPORT INFORMATION
  Report Type: 
  Country: None (occurrence: None)
  Receive Date: 20100406
  Receipt Date: 20100325
  Transmission Date: 20101027
  Serious: Yes (Other)
  Sender: FDA-Public Use
  Company Number: JP-PFIZER INC-2010041448

PATIENT
  Sex: Female

DRUGS (1)
  1. SELARA [Suspect]
     Route: 052
     Dates: start: 20091101

REACTIONS (1)
  - URINARY INCONTINENCE [None]
